FAERS Safety Report 17441712 (Version 4)
Quarter: 2020Q2

REPORT INFORMATION
  Report Type: Report from Study
  Country: US (occurrence: US)
  Receive Date: 20200220
  Receipt Date: 20200615
  Transmission Date: 20200713
  Serious: Yes (Other)
  Sender: FDA-Public Use
  Company Number: US-BRISTOL-MYERS SQUIBB COMPANY-BMS-2019-056742

PATIENT
  Sex: Female

DRUGS (8)
  1. PROZAC [Concomitant]
     Active Substance: FLUOXETINE HYDROCHLORIDE
     Indication: PRODUCT USED FOR UNKNOWN INDICATION
     Dosage: 40 MILLIGRAM
     Route: 065
  2. XANAX [Concomitant]
     Active Substance: ALPRAZOLAM
     Indication: PRODUCT USED FOR UNKNOWN INDICATION
     Dosage: UNK
     Route: 065
  3. NIVOLUMAB [Suspect]
     Active Substance: NIVOLUMAB
     Indication: RENAL CELL CARCINOMA
     Dosage: UNK, TWICE A MONTH
     Route: 042
     Dates: start: 201707
  4. NIVOLUMAB [Suspect]
     Active Substance: NIVOLUMAB
     Indication: PRODUCT USED FOR UNKNOWN INDICATION
     Dosage: UNK UNK, Q4WK
     Route: 042
  5. CLONIDINE. [Concomitant]
     Active Substance: CLONIDINE
     Indication: PRODUCT USED FOR UNKNOWN INDICATION
     Dosage: UNK
     Route: 065
  6. NIVOLUMAB [Suspect]
     Active Substance: NIVOLUMAB
     Indication: RENAL CELL CARCINOMA
     Dosage: UNK, Q2WK
     Route: 042
  7. HYDROCHLOROTHIAZIDE. [Concomitant]
     Active Substance: HYDROCHLOROTHIAZIDE
     Indication: PRODUCT USED FOR UNKNOWN INDICATION
     Dosage: UNK
     Route: 065
  8. VALIUM [Concomitant]
     Active Substance: DIAZEPAM
     Indication: PRODUCT USED FOR UNKNOWN INDICATION
     Dosage: UNK
     Route: 065

REACTIONS (31)
  - Hernia [Unknown]
  - Kidney infection [Unknown]
  - Urinary hesitation [Unknown]
  - Skin atrophy [Unknown]
  - Rash [Unknown]
  - Hypersomnia [Unknown]
  - Fatigue [Recovered/Resolved]
  - Incision site pain [Unknown]
  - Headache [Unknown]
  - Constipation [Unknown]
  - Colitis [Unknown]
  - Memory impairment [Not Recovered/Not Resolved]
  - Scratch [Unknown]
  - Skin fissures [Unknown]
  - Erythema [Unknown]
  - Uveitis [Unknown]
  - Haematochezia [Unknown]
  - Dyspnoea [Recovered/Resolved]
  - Muscular weakness [Unknown]
  - Stomach mass [Unknown]
  - Rash morbilliform [Unknown]
  - Muscle spasms [Unknown]
  - Skin haemorrhage [Unknown]
  - Pain in extremity [Unknown]
  - Diarrhoea [Unknown]
  - Alopecia [Unknown]
  - Micturition urgency [Unknown]
  - Contusion [Unknown]
  - Arthropathy [Unknown]
  - Urine odour abnormal [Unknown]
  - Tinnitus [Unknown]
